FAERS Safety Report 5979849-X (Version None)
Quarter: 2008Q4

REPORT INFORMATION
  Report Type: 
  Country: None (occurrence: None)
  Receive Date: 20081126
  Receipt Date: 20081114
  Transmission Date: 20090506
  Serious: No
  Sender: FDA-Public Use
  Company Number: 004428

PATIENT
  Sex: Male

DRUGS (4)
  1. PLETAL [Suspect]
     Indication: ARTERIOSCLEROSIS OBLITERANS
     Dosage: 100 MG, BID, ORAL
     Route: 048
     Dates: start: 20080823
  2. ASPIRIN [Concomitant]
  3. ANTIHYPERTENSIVES (ANTIHYPERTENSIVES) [Concomitant]
  4. ANTIDIABETIC AGENTS (ANTIDIABETIC AGENTS) [Concomitant]

REACTIONS (1)
  - CARDIAC FAILURE [None]
